FAERS Safety Report 9417230 (Version 1)
Quarter: 2013Q3

REPORT INFORMATION
  Report Type: Spontaneous
  Country: US (occurrence: US)
  Receive Date: 20130724
  Receipt Date: 20130724
  Transmission Date: 20140515
  Serious: No
  Sender: FDA-Public Use
  Company Number: US-BAUSCH-BL-2013-003290

PATIENT
  Age: 61 Year
  Sex: Female

DRUGS (2)
  1. OPCON-A [Suspect]
     Indication: MULTIPLE ALLERGIES
     Dosage: 2 DROPS IN EACH EYE, ONE TIME
     Route: 047
     Dates: start: 20130521, end: 20130521
  2. OPCON-A [Suspect]
     Indication: LACRIMATION INCREASED

REACTIONS (1)
  - Abnormal sensation in eye [Not Recovered/Not Resolved]
